FAERS Safety Report 9781883 (Version 1)
Quarter: 2013Q4

REPORT INFORMATION
  Report Type: Spontaneous
  Country: US (occurrence: US)
  Receive Date: 20131225
  Receipt Date: 20131225
  Transmission Date: 20140711
  Serious: No
  Sender: FDA-Public Use
  Company Number: US-009507513-1312USA011093

PATIENT
  Sex: 0

DRUGS (1)
  1. DULERA [Suspect]
     Dosage: UNK
     Route: 055

REACTIONS (2)
  - Product quality issue [Unknown]
  - Circumstance or information capable of leading to medication error [Unknown]
